FAERS Safety Report 20423596 (Version 1)
Quarter: 2022Q1

REPORT INFORMATION
  Report Type: Spontaneous
  Country: BE (occurrence: BE)
  Receive Date: 20220203
  Receipt Date: 20220203
  Transmission Date: 20220424
  Serious: Yes (Hospitalization)
  Sender: FDA-Public Use
  Company Number: BE-TEVA-2020-BE-1790111

PATIENT
  Age: 67 Year
  Sex: Male

DRUGS (12)
  1. CLOPIDOGREL [Interacting]
     Active Substance: CLOPIDOGREL BISULFATE
     Route: 065
  2. SIMVASTATIN [Interacting]
     Active Substance: SIMVASTATIN
     Route: 065
  3. APIXABAN [Interacting]
     Active Substance: APIXABAN
     Route: 065
  4. LERCANIDIPINE [Interacting]
     Active Substance: LERCANIDIPINE
     Route: 065
  5. EPLERENONE [Interacting]
     Active Substance: EPLERENONE
     Route: 065
  6. REPAGLINIDE [Interacting]
     Active Substance: REPAGLINIDE
     Indication: Type 2 diabetes mellitus
     Dosage: INTRODUCED SEVERAL MONTHS AGO
     Route: 065
  7. COLCHICINE [Interacting]
     Active Substance: COLCHICINE
     Indication: Gout
     Dosage: HAD STARTED RECEIVING OVER THE LAST MONTH
     Route: 065
  8. PANTOPRAZOLE [Concomitant]
     Active Substance: PANTOPRAZOLE
     Route: 065
  9. LOSARTAN [Concomitant]
     Active Substance: LOSARTAN
     Route: 065
  10. MOXONIDINE [Concomitant]
     Active Substance: MOXONIDINE
     Route: 065
  11. METFORMIN [Concomitant]
     Active Substance: METFORMIN HYDROCHLORIDE
     Indication: Type 2 diabetes mellitus
     Route: 065
  12. ALLOPURINOL [Concomitant]
     Active Substance: ALLOPURINOL
     Route: 065

REACTIONS (4)
  - Hypoglycaemia [Recovered/Resolved]
  - Drug interaction [Recovered/Resolved]
  - Altered state of consciousness [Recovered/Resolved]
  - Product administration error [Unknown]
